FAERS Safety Report 23366875 (Version 1)
Quarter: 2024Q1

REPORT INFORMATION
  Report Type: Spontaneous
  Country: US (occurrence: None)
  Receive Date: 20240104
  Receipt Date: 20240104
  Transmission Date: 20240410
  Serious: Yes (Hospitalization)
  Sender: FDA-Public Use
  Company Number: None

PATIENT
  Age: 71 Year
  Sex: Male
  Weight: 96.2 kg

DRUGS (4)
  1. CYTARABINE [Suspect]
     Active Substance: CYTARABINE
     Dates: end: 20231128
  2. DEXAMETHASONE [Suspect]
     Active Substance: DEXAMETHASONE
     Dates: end: 20231127
  3. METHOTREXATE [Suspect]
     Dates: end: 20231127
  4. PONATINIB HYDROCHLORIDE [Suspect]
     Dates: end: 20231206

REACTIONS (9)
  - Neutrophil count decreased [None]
  - Platelet count decreased [None]
  - Febrile neutropenia [None]
  - Dyspnoea [None]
  - Complication associated with device [None]
  - Catheter site erythema [None]
  - Palpitations [None]
  - Angiogram abnormal [None]
  - Iliac artery disease [None]

NARRATIVE: CASE EVENT DATE: 20231207
